FAERS Safety Report 11306415 (Version 2)
Quarter: 2015Q3

REPORT INFORMATION
  Report Type: Spontaneous
  Country: US (occurrence: US)
  Receive Date: 20150723
  Receipt Date: 20150803
  Transmission Date: 20151125
  Serious: No
  Sender: FDA-Public Use
  Company Number: US-AMGEN-USASP2015072265

PATIENT
  Age: 55 Year
  Sex: Male

DRUGS (1)
  1. ENBREL [Suspect]
     Active Substance: ETANERCEPT
     Indication: PRODUCT USED FOR UNKNOWN INDICATION
     Dosage: UNK
     Route: 065
     Dates: start: 201211

REACTIONS (6)
  - Skin disorder [Unknown]
  - Injection site pain [Unknown]
  - Impaired healing [Unknown]
  - Condition aggravated [Unknown]
  - Injection site rash [Unknown]
  - Skin tightness [Unknown]

NARRATIVE: CASE EVENT DATE: 201211
